FAERS Safety Report 10021321 (Version 2)
Quarter: 2014Q2

REPORT INFORMATION
  Report Type: Spontaneous
  Country: US (occurrence: US)
  Receive Date: 20140319
  Receipt Date: 20140408
  Transmission Date: 20141212
  Serious: Yes (Other)
  Sender: FDA-Public Use
  Company Number: US-SA-2014SA033949

PATIENT
  Age: 42 Year
  Sex: Female
  Weight: 107.04 kg

DRUGS (3)
  1. LUMIZYME [Suspect]
     Indication: GLYCOGEN STORAGE DISEASE TYPE II
     Dosage: 2250MG (20 MG/KG)
     Route: 042
     Dates: start: 20120525
  2. TYLENOL [Concomitant]
     Indication: PREMEDICATION
     Route: 048
  3. DIPHENHYDRAMINE [Concomitant]
     Indication: PREMEDICATION
     Route: 042

REACTIONS (4)
  - Foot fracture [Unknown]
  - Exostosis [Unknown]
  - Rash papular [Recovered/Resolved]
  - Rash [Unknown]
